FAERS Safety Report 24213270 (Version 1)
Quarter: 2024Q3

REPORT INFORMATION
  Report Type: Spontaneous
  Country: ES (occurrence: ES)
  Receive Date: 20240815
  Receipt Date: 20240815
  Transmission Date: 20241016
  Serious: Yes (Life-Threatening, Hospitalization, Other)
  Sender: PFIZER
  Company Number: None

PATIENT
  Age: 43 Year
  Sex: Male
  Weight: 84 kg

DRUGS (1)
  1. RITUXIMAB [Suspect]
     Active Substance: RITUXIMAB
     Indication: Follicular lymphoma
     Dosage: 765 MG, CYCLIC (EVERY TWO MONTHS)
     Route: 042
     Dates: start: 20230816

REACTIONS (6)
  - Meningoradiculitis [Recovered/Resolved]
  - CSF protein increased [Unknown]
  - CSF white blood cell count increased [Unknown]
  - Blood creatine phosphokinase increased [Unknown]
  - Red blood cell count increased [Unknown]
  - Neutrophil count increased [Unknown]

NARRATIVE: CASE EVENT DATE: 20240601
